FAERS Safety Report 8126930-5 (Version None)
Quarter: 2012Q1

REPORT INFORMATION
  Report Type: 
  Country: None (occurrence: None)
  Receive Date: 20120210
  Receipt Date: 20120209
  Transmission Date: 20120608
  Serious: Yes (Other)
  Sender: FDA-Public Use
  Company Number: US-PFIZER INC-2012035250

PATIENT
  Sex: Female
  Weight: 79.365 kg

DRUGS (3)
  1. CELEBREX [Suspect]
     Indication: BACK PAIN
     Dosage: 200 MG, 1X/DAY
     Route: 048
     Dates: start: 20111201, end: 20120122
  2. ACETYLSALICYLIC ACID [Concomitant]
     Dosage: 81 MG, UNK
  3. SYNTHROID [Concomitant]
     Dosage: UNK

REACTIONS (4)
  - ALOPECIA [None]
  - EPISTAXIS [None]
  - HEADACHE [None]
  - DIZZINESS [None]
